FAERS Safety Report 12168854 (Version 1)
Quarter: 2016Q1

REPORT INFORMATION
  Report Type: Other
  Country: GB (occurrence: GB)
  Receive Date: 20160310
  Receipt Date: 20160310
  Transmission Date: 20160526
  Serious: Yes (Other)
  Sender: FDA-Public Use
  Company Number: GB-MEDAC PHARMA, INC.-1048885

PATIENT
  Age: 47 Year
  Sex: Male

DRUGS (9)
  1. METHOTREXATE [Suspect]
     Active Substance: METHOTREXATE
  2. PREDNISOLONE. [Suspect]
     Active Substance: PREDNISOLONE
  3. CYCLOSPORINE. [Suspect]
     Active Substance: CYCLOSPORINE
  4. AZATHIOPRINE. [Suspect]
     Active Substance: AZATHIOPRINE
  5. TACROLIMUS. [Concomitant]
     Active Substance: TACROLIMUS
  6. FUMARIC ACID [Concomitant]
     Active Substance: FUMARIC ACID
  7. RITUXIMAB [Concomitant]
     Active Substance: RITUXIMAB
     Dates: start: 201305
  8. MYCOPHENOLATE MOFETIL. [Concomitant]
     Active Substance: MYCOPHENOLATE MOFETIL
  9. RITUXIMAB [Concomitant]
     Active Substance: RITUXIMAB
     Dates: start: 201208

REACTIONS (3)
  - Cushingoid [Unknown]
  - Drug ineffective [None]
  - Skin infection [Unknown]
